FAERS Safety Report 22269116 (Version 3)
Quarter: 2024Q2

REPORT INFORMATION
  Report Type: Report from Study
  Country: US (occurrence: US)
  Receive Date: 20230501
  Receipt Date: 20240430
  Transmission Date: 20240716
  Serious: Yes (Other)
  Sender: FDA-Public Use
  Company Number: US-ASTELLAS-2023US013170

PATIENT
  Age: 87 Year
  Sex: Male

DRUGS (3)
  1. ENZALUTAMIDE [Suspect]
     Active Substance: ENZALUTAMIDE
     Indication: Prostatic specific antigen increased
     Route: 065
     Dates: start: 20220722, end: 202303
  2. ENZALUTAMIDE [Suspect]
     Active Substance: ENZALUTAMIDE
     Indication: Prostate cancer
     Route: 065
     Dates: start: 202303
  3. ENZALUTAMIDE [Suspect]
     Active Substance: ENZALUTAMIDE
     Route: 065
     Dates: end: 2024

REACTIONS (15)
  - Blindness unilateral [Unknown]
  - Malignant urinary tract obstruction [Unknown]
  - Malignant urinary tract neoplasm [Unknown]
  - Oncologic complication [Unknown]
  - Prostatic specific antigen increased [Unknown]
  - Incontinence [Unknown]
  - Dizziness [Unknown]
  - Vision blurred [Unknown]
  - Fall [Unknown]
  - Blood pressure increased [Unknown]
  - Back pain [Unknown]
  - Hot flush [Unknown]
  - Constipation [Unknown]
  - Decreased appetite [Unknown]
  - Taste disorder [Unknown]

NARRATIVE: CASE EVENT DATE: 20230401
